FAERS Safety Report 19351690 (Version 1)
Quarter: 2021Q2

REPORT INFORMATION
  Report Type: Spontaneous
  Country: JP (occurrence: JP)
  Receive Date: 20210531
  Receipt Date: 20210531
  Transmission Date: 20210717
  Serious: Yes (Other)
  Sender: FDA-Public Use
  Company Number: JP-MICRO LABS LIMITED-ML2021-01627

PATIENT
  Age: 44 Year
  Sex: Female

DRUGS (7)
  1. LEVETIRACETAM. [Suspect]
     Active Substance: LEVETIRACETAM
     Dosage: AT 6 MONTHS
  2. LEVETIRACETAM. [Suspect]
     Active Substance: LEVETIRACETAM
  3. LEVETIRACETAM. [Suspect]
     Active Substance: LEVETIRACETAM
     Dosage: WITH 4 WEEKS APART
  4. LEVETIRACETAM. [Suspect]
     Active Substance: LEVETIRACETAM
  5. GABAPENTIN. [Concomitant]
     Active Substance: GABAPENTIN
     Indication: TEMPORAL LOBE EPILEPSY
  6. LEVETIRACETAM. [Suspect]
     Active Substance: LEVETIRACETAM
     Indication: TEMPORAL LOBE EPILEPSY
  7. CLOBAZAM. [Concomitant]
     Active Substance: CLOBAZAM
     Indication: TEMPORAL LOBE EPILEPSY

REACTIONS (2)
  - Paradoxical drug reaction [Recovering/Resolving]
  - Epilepsy [Recovering/Resolving]
